FAERS Safety Report 9230617 (Version 1)
Quarter: 2013Q2

REPORT INFORMATION
  Report Type: Spontaneous
  Country: AU (occurrence: None)
  Receive Date: 20130411
  Receipt Date: 20130411
  Transmission Date: 20140414
  Serious: Yes (Hospitalization, Other)
  Sender: FDA-Public Use
  Company Number: 2013000087

PATIENT
  Age: 78 Year
  Sex: Female

DRUGS (3)
  1. ACEON [Suspect]
     Indication: ESSENTIAL HYPERTENSION
     Route: 048
     Dates: end: 20121120
  2. COLECALCIFEROL (COLECALCIFEROL) [Concomitant]
  3. LERCANIDIPINE HYDROCHLORIDE (LERCANIDIPINE HYDROCHLORIDE) [Concomitant]

REACTIONS (2)
  - Pain in jaw [None]
  - Angioedema [None]
